FAERS Safety Report 22257840 (Version 1)
Quarter: 2023Q2

REPORT INFORMATION
  Report Type: Spontaneous
  Country: MX (occurrence: MX)
  Receive Date: 20230427
  Receipt Date: 20230427
  Transmission Date: 20230722
  Serious: Yes (Other)
  Sender: FDA-Public Use
  Company Number: MX-AMGEN-MEXSP2023069629

PATIENT
  Age: 11 Year
  Sex: Male

DRUGS (2)
  1. BLINCYTO [Suspect]
     Active Substance: BLINATUMOMAB
     Indication: Product used for unknown indication
     Dosage: 5 MICROGRAM (FROM DAY 1 TO 8)
     Route: 042
     Dates: start: 20230316
  2. BLINCYTO [Suspect]
     Active Substance: BLINATUMOMAB
     Dosage: 15 MICROGRAM (FROM DAY 9 IT WAS INCREASED TO 15 MCG)
     Route: 042
     Dates: start: 20230324

REACTIONS (7)
  - Hyperleukocytosis [Recovered/Resolved]
  - Condition aggravated [Unknown]
  - Splenomegaly [Recovered/Resolved]
  - Hypophagia [Recovered/Resolved]
  - Blood lactate dehydrogenase increased [Recovered/Resolved]
  - Lymphadenopathy [Recovered/Resolved]
  - Pyrexia [Recovered/Resolved]

NARRATIVE: CASE EVENT DATE: 20230301
